FAERS Safety Report 8214087-1 (Version None)
Quarter: 2012Q1

REPORT INFORMATION
  Report Type: 
  Country: None (occurrence: None)
  Receive Date: 20120314
  Receipt Date: 20120314
  Transmission Date: 20120608
  Serious: Yes (Hospitalization)
  Sender: FDA-Public Use
  Company Number: None

PATIENT
  Age: 19 Year
  Sex: Female
  Weight: 54.5 kg

DRUGS (3)
  1. LORATADINE [Concomitant]
  2. AZITHROMYCIN [Concomitant]
  3. BACTRIM [Suspect]

REACTIONS (6)
  - RASH PRURITIC [None]
  - RASH MACULAR [None]
  - COUGH [None]
  - PNEUMONIA [None]
  - RASH MORBILLIFORM [None]
  - LIVER FUNCTION TEST ABNORMAL [None]
